FAERS Safety Report 5877173-7 (Version None)
Quarter: 2008Q3

REPORT INFORMATION
  Report Type: 
  Country: None (occurrence: None)
  Receive Date: 20080909
  Receipt Date: 20080909
  Transmission Date: 20090109
  Serious: Yes (Other)
  Sender: FDA-Public Use
  Company Number: None

PATIENT
  Age: 6 Year
  Sex: Male
  Weight: 17.6 kg

DRUGS (1)
  1. PREVACID [Suspect]
     Indication: ABDOMINAL PAIN
     Dosage: 15 MG B.I.D. PO
     Route: 048
     Dates: start: 20080718, end: 20080824

REACTIONS (6)
  - DYSTONIA [None]
  - MUSCLE STRAIN [None]
  - NECK PAIN [None]
  - NONSPECIFIC REACTION [None]
  - THERAPEUTIC RESPONSE DECREASED [None]
  - TORTICOLLIS [None]
